FAERS Safety Report 11196605 (Version 7)
Quarter: 2017Q4

REPORT INFORMATION
  Report Type: Spontaneous
  Country: CA (occurrence: CA)
  Receive Date: 20150617
  Receipt Date: 20171023
  Transmission Date: 20180320
  Serious: Yes (Other)
  Sender: FDA-Public Use
  Company Number: CA-PFIZER INC-2015199650

PATIENT
  Age: 41 Year
  Sex: Female
  Weight: 62.4 kg

DRUGS (5)
  1. XELJANZ [Suspect]
     Active Substance: TOFACITINIB CITRATE
     Indication: RHEUMATOID ARTHRITIS
     Dosage: 5 MG, 2X/DAY
     Route: 048
     Dates: start: 20150320, end: 201505
  2. XELJANZ [Suspect]
     Active Substance: TOFACITINIB CITRATE
     Dosage: 20 MG, DAILY (4 PILLS A DAY)
     Dates: start: 2017, end: 2017
  3. XELJANZ [Suspect]
     Active Substance: TOFACITINIB CITRATE
     Dosage: 5 MG, DAILY (1 PILL PER DAY)
  4. XELJANZ [Suspect]
     Active Substance: TOFACITINIB CITRATE
     Dosage: 10 MG, DAILY (2 PILLS PER DAY)
     Dates: end: 2017
  5. XELJANZ [Suspect]
     Active Substance: TOFACITINIB CITRATE
     Dosage: 5 MG, 3X/DAY
     Route: 048
     Dates: end: 201708

REACTIONS (11)
  - Cystitis [Recovered/Resolved]
  - Pathogen resistance [Recovered/Resolved]
  - Inappropriate schedule of drug administration [Unknown]
  - Root canal infection [Recovered/Resolved]
  - Peripheral swelling [Not Recovered/Not Resolved]
  - Tooth abscess [Recovered/Resolved]
  - Nasopharyngitis [Recovered/Resolved]
  - Drug dose omission [Unknown]
  - Back pain [Recovered/Resolved]
  - Red blood cell sedimentation rate increased [Unknown]
  - Drug ineffective [Unknown]

NARRATIVE: CASE EVENT DATE: 20160607
